FAERS Safety Report 21065090 (Version 3)
Quarter: 2022Q3

REPORT INFORMATION
  Report Type: Report from Study
  Country: ES (occurrence: ES)
  Receive Date: 20220711
  Receipt Date: 20220725
  Transmission Date: 20221026
  Serious: Yes (Other)
  Sender: FDA-Public Use
  Company Number: ES-TAKEDA-2022TUS045019

PATIENT
  Age: 65 Year
  Sex: Male

DRUGS (19)
  1. TACROLIMUS [Suspect]
     Active Substance: TACROLIMUS
     Indication: Chronic graft versus host disease
     Dosage: 1.5 MILLIGRAM, QD
     Route: 048
     Dates: start: 20210512
  2. TACROLIMUS [Suspect]
     Active Substance: TACROLIMUS
     Indication: Immunosuppression
  3. SIROLIMUS [Suspect]
     Active Substance: SIROLIMUS
     Indication: Chronic graft versus host disease
     Dosage: 1.5 MILLIGRAM, QD
     Route: 048
     Dates: start: 20210512
  4. SIROLIMUS [Suspect]
     Active Substance: SIROLIMUS
     Indication: Immunosuppression
  5. OMEPRAZOLE [Concomitant]
     Active Substance: OMEPRAZOLE
     Indication: Prophylaxis
     Dosage: 1.5 MILLIGRAM, QD
     Route: 048
     Dates: start: 20210512
  6. ACYCLOVIR [Concomitant]
     Active Substance: ACYCLOVIR
     Indication: Antiviral prophylaxis
     Dosage: 800 MILLIGRAM, BID
     Route: 048
  7. URSODIOL [Concomitant]
     Active Substance: URSODIOL
     Indication: Prophylaxis
     Dosage: 300 MILLIGRAM, QD
     Route: 048
  8. TEBETANE COMPUESTO [Concomitant]
     Indication: Benign prostatic hyperplasia
     Dosage: UNK UNK, TID
     Route: 048
  9. SULFAMETHOXAZOLE\TRIMETHOPRIM [Concomitant]
     Active Substance: SULFAMETHOXAZOLE\TRIMETHOPRIM
     Indication: Prophylaxis
     Dosage: UNK UNK, 3/WEEK
     Route: 048
     Dates: start: 20210705
  10. LORAZEPAM [Concomitant]
     Active Substance: LORAZEPAM
     Indication: Insomnia
     Dosage: 1 MILLIGRAM, QD
     Route: 048
  11. NYSTATIN [Concomitant]
     Active Substance: NYSTATIN
     Indication: Antifungal prophylaxis
     Dosage: UNK UNK, TID
     Route: 050
  12. Magnesio [Concomitant]
     Indication: Supplementation therapy
     Dosage: UNK UNK, BID
     Route: 048
  13. VITAMIN A [Concomitant]
     Active Substance: VITAMIN A
     Indication: Supplementation therapy
     Dosage: UNK UNK, QD
     Route: 048
  14. CHOLECALCIFEROL [Concomitant]
     Active Substance: CHOLECALCIFEROL
     Indication: Supplementation therapy
     Dosage: UNK UNK, 4/WEEK
     Route: 048
  15. HYDROCORTISONE SODIUM PHOSPHATE [Concomitant]
     Active Substance: HYDROCORTISONE SODIUM PHOSPHATE
     Indication: Chronic graft versus host disease in eye
     Dosage: UNK UNK, QD
     Route: 050
  16. COMBIGAN [Concomitant]
     Active Substance: BRIMONIDINE TARTRATE\TIMOLOL MALEATE
     Indication: Chronic graft versus host disease in eye
     Dosage: UNK UNK, BID
     Route: 050
  17. CYCLOSPORINE [Concomitant]
     Active Substance: CYCLOSPORINE
     Indication: Chronic graft versus host disease in eye
     Dosage: UNK UNK, BID
     Route: 050
  18. THEALOZ DUO GEL [Concomitant]
     Indication: Chronic graft versus host disease in eye
     Dosage: UNK UNK, QD
     Route: 050
     Dates: start: 20210523
  19. AMLODIPINE BESYLATE [Concomitant]
     Active Substance: AMLODIPINE BESYLATE
     Indication: Arterial therapeutic procedure
     Dosage: 5 MILLIGRAM
     Route: 048

REACTIONS (1)
  - Condition aggravated [Not Recovered/Not Resolved]

NARRATIVE: CASE EVENT DATE: 20220428
